FAERS Safety Report 24261997 (Version 1)
Quarter: 2024Q3

REPORT INFORMATION
  Report Type: Spontaneous
  Country: US (occurrence: US)
  Receive Date: 20240829
  Receipt Date: 20240829
  Transmission Date: 20241017
  Serious: Yes (Other)
  Sender: BRISTOL MYERS SQUIBB
  Company Number: US-BRISTOL-MYERS SQUIBB COMPANY-2024-133948

PATIENT
  Age: 51 Year
  Sex: Male
  Weight: 66.2 kg

DRUGS (1)
  1. OPDIVO [Suspect]
     Active Substance: NIVOLUMAB
     Indication: Renal cell carcinoma
     Dosage: EVERY 14 DAYS
     Route: 042
     Dates: start: 20240606, end: 20240809

REACTIONS (1)
  - Adverse event [Unknown]
